FAERS Safety Report 24875238 (Version 4)
Quarter: 2025Q2

REPORT INFORMATION
  Report Type: Spontaneous
  Country: BR (occurrence: BR)
  Receive Date: 20250122
  Receipt Date: 20250512
  Transmission Date: 20250716
  Serious: Yes (Life-Threatening, Hospitalization, Other)
  Sender: PFIZER
  Company Number: BR-PFIZER INC-PV202500007654

PATIENT
  Age: 62 Year
  Sex: Female

DRUGS (5)
  1. CARBOPLATIN [Suspect]
     Active Substance: CARBOPLATIN
     Indication: HER2 positive breast cancer
  2. TRASTUZUMAB [Suspect]
     Active Substance: TRASTUZUMAB
     Indication: HER2 positive breast cancer
  3. TRASTUZUMAB [Suspect]
     Active Substance: TRASTUZUMAB
  4. TRASTUZUMAB [Suspect]
     Active Substance: TRASTUZUMAB
  5. DOCETAXEL [Suspect]
     Active Substance: DOCETAXEL
     Indication: HER2 positive breast cancer

REACTIONS (6)
  - Osteonecrosis [Unknown]
  - Myelosuppression [Unknown]
  - Oesophageal candidiasis [Unknown]
  - Thrombocytopenia [Unknown]
  - Hypokalaemia [Unknown]
  - Off label use [Unknown]
